FAERS Safety Report 24815039 (Version 1)
Quarter: 2025Q1

REPORT INFORMATION
  Report Type: Report from Study
  Country: TH (occurrence: TH)
  Receive Date: 20250107
  Receipt Date: 20250107
  Transmission Date: 20250409
  Serious: Yes (Death, Hospitalization)
  Sender: PFIZER
  Company Number: TH-PFIZER INC-PV202500001011

PATIENT
  Age: 76 Year
  Sex: Male
  Weight: 66 kg

DRUGS (11)
  1. DOXORUBICIN [Suspect]
     Active Substance: DOXORUBICIN
     Indication: Diffuse large B-cell lymphoma
     Route: 042
     Dates: start: 20220701
  2. INVESTIGATIONAL PRODUCT [Suspect]
     Active Substance: INVESTIGATIONAL PRODUCT
     Indication: Diffuse large B-cell lymphoma
     Route: 042
     Dates: start: 20220701
  3. INVESTIGATIONAL PRODUCT [Suspect]
     Active Substance: INVESTIGATIONAL PRODUCT
     Dosage: LENALIDOMIDE VS PLACEBO, 1X/DAY
     Route: 048
     Dates: start: 20220701
  4. INVESTIGATIONAL PRODUCT [Suspect]
     Active Substance: INVESTIGATIONAL PRODUCT
     Dates: start: 20221020
  5. RITUXIMAB [Suspect]
     Active Substance: RITUXIMAB
     Indication: Diffuse large B-cell lymphoma
     Route: 042
     Dates: start: 20220701
  6. CYCLOPHOSPHAMIDE [Suspect]
     Active Substance: CYCLOPHOSPHAMIDE
     Indication: Diffuse large B-cell lymphoma
     Route: 042
     Dates: start: 20220701
  7. VINCRISTINE [Suspect]
     Active Substance: VINCRISTINE
     Indication: Diffuse large B-cell lymphoma
     Route: 042
     Dates: start: 20220701
  8. PREDNISOLONE [Suspect]
     Active Substance: PREDNISOLONE
     Indication: Diffuse large B-cell lymphoma
     Route: 048
     Dates: start: 20220701
  9. MANIDIPINE [Concomitant]
     Active Substance: MANIDIPINE
     Dates: start: 20221002
  10. ASPIRIN [Concomitant]
     Active Substance: ASPIRIN
     Dates: start: 20220701
  11. ACYCLOVIR ALPHARMA [ACICLOVIR] [Concomitant]
     Dates: start: 20220701

REACTIONS (3)
  - Septic shock [Fatal]
  - Febrile neutropenia [Not Recovered/Not Resolved]
  - Pancytopenia [Not Recovered/Not Resolved]

NARRATIVE: CASE EVENT DATE: 20221028
